FAERS Safety Report 20867828 (Version 1)
Quarter: 2022Q2

REPORT INFORMATION
  Report Type: Spontaneous
  Country: ES (occurrence: ES)
  Receive Date: 20220524
  Receipt Date: 20220524
  Transmission Date: 20220721
  Serious: Yes (Other)
  Sender: FDA-Public Use
  Company Number: ES-SCALL-2022-ES-000065

PATIENT
  Age: 62 Year
  Sex: Male

DRUGS (2)
  1. DUTASTERIDE\TAMSULOSIN HYDROCHLORIDE [Suspect]
     Active Substance: DUTASTERIDE\TAMSULOSIN HYDROCHLORIDE
     Indication: Benign prostatic hyperplasia
     Dosage: 1 DF, QD
     Route: 048
     Dates: start: 20210614
  2. VAXZEVRIA [Suspect]
     Active Substance: AZD-1222
     Route: 030
     Dates: start: 20210730, end: 20210730

REACTIONS (4)
  - Syncope [Recovered/Resolved]
  - Presyncope [Recovered/Resolved]
  - Road traffic accident [Recovered/Resolved]
  - Radius fracture [Recovering/Resolving]

NARRATIVE: CASE EVENT DATE: 20210803
